FAERS Safety Report 4445642-2 (Version None)
Quarter: 2004Q3

REPORT INFORMATION
  Report Type: 
  Country: None (occurrence: None)
  Receive Date: 20040907
  Receipt Date: 20040818
  Transmission Date: 20050211
  Serious: Yes (Other)
  Sender: FDA-Public Use
  Company Number: GBS040815438

PATIENT
  Age: 32 Year
  Sex: Female

DRUGS (1)
  1. CEPHALEXIN [Suspect]
     Indication: LARYNGITIS
     Dosage: 250 MG/4 DAY
     Dates: start: 20040809, end: 20040811

REACTIONS (2)
  - PARAESTHESIA [None]
  - SLEEP DISORDER [None]
